FAERS Safety Report 10092608 (Version 1)
Quarter: 2014Q2

REPORT INFORMATION
  Report Type: Spontaneous
  Country: US (occurrence: US)
  Receive Date: 20140421
  Receipt Date: 20140421
  Transmission Date: 20141212
  Serious: Yes (Other)
  Sender: FDA-Public Use
  Company Number: US-SANOFI-AVENTIS-2013SA058769

PATIENT
  Sex: Female

DRUGS (1)
  1. ALLEGRA [Suspect]
     Route: 048
     Dates: start: 1998

REACTIONS (4)
  - Pharyngeal oedema [Unknown]
  - Mouth swelling [Unknown]
  - Angioedema [Unknown]
  - Wrong technique in drug usage process [Unknown]
